FAERS Safety Report 11207152 (Version 1)
Quarter: 2015Q2

REPORT INFORMATION
  Report Type: Report from Study
  Country: US (occurrence: US)
  Receive Date: 20150622
  Receipt Date: 20150622
  Transmission Date: 20150821
  Serious: No
  Sender: FDA-Public Use
  Company Number: US-ABBVIE-15P-163-1401993-00

PATIENT
  Age: 40 Year
  Sex: Male
  Weight: 77.18 kg

DRUGS (2)
  1. VIEKIRA PAK [Suspect]
     Active Substance: DASABUVIR\OMBITASVIR\PARITAPREVIR\RITONAVIR
     Indication: HEPATITIS C
     Dosage: PER MANUFACTURETES PACKAGE DIRECTIONS WEEKLY PACKS IN AM AND PM
     Route: 048
     Dates: start: 20150414
  2. RIBAVIRIN. [Suspect]
     Active Substance: RIBAVIRIN
     Indication: PRODUCT USED FOR UNKNOWN INDICATION
     Dosage: STARTED 1 WEEK AFTER VIEKIRA PAK
     Route: 048
     Dates: start: 201504

REACTIONS (2)
  - Muscle spasms [Not Recovered/Not Resolved]
  - Adverse drug reaction [Not Recovered/Not Resolved]

NARRATIVE: CASE EVENT DATE: 201504
